FAERS Safety Report 13772625 (Version 2)
Quarter: 2017Q3

REPORT INFORMATION
  Report Type: Spontaneous
  Country: BE (occurrence: BE)
  Receive Date: 20170720
  Receipt Date: 20170802
  Transmission Date: 20171127
  Serious: Yes (Hospitalization, Other)
  Sender: FDA-Public Use
  Company Number: BE-TEVA-788809ROM

PATIENT
  Age: 63 Year
  Sex: Female

DRUGS (4)
  1. COLCHICINE. [Concomitant]
     Active Substance: COLCHICINE
  2. PERINDOPRIL [Suspect]
     Active Substance: PERINDOPRIL
     Indication: HYPERTENSION
     Dosage: 10 MILLIGRAM DAILY;
     Route: 065
  3. METFORMIN [Suspect]
     Active Substance: METFORMIN HYDROCHLORIDE
     Indication: TYPE 2 DIABETES MELLITUS
     Dosage: 1700 MILLIGRAM DAILY;
     Route: 065
  4. IBUPROFEN. [Suspect]
     Active Substance: IBUPROFEN
     Indication: ANTIINFLAMMATORY THERAPY
     Dosage: 800 MILLIGRAM DAILY;
     Route: 065

REACTIONS (3)
  - Acute kidney injury [Recovering/Resolving]
  - Hyperlactacidaemia [Recovering/Resolving]
  - Metabolic acidosis [Recovering/Resolving]
